FAERS Safety Report 21518909 (Version 1)
Quarter: 2022Q4

REPORT INFORMATION
  Report Type: Spontaneous
  Country: US (occurrence: None)
  Receive Date: 20221027
  Receipt Date: 20221027
  Transmission Date: 20230113
  Serious: Yes (Hospitalization)
  Sender: FDA-Public Use
  Company Number: None

PATIENT
  Sex: Male
  Weight: 117 kg

DRUGS (1)
  1. REMDESIVIR [Suspect]
     Active Substance: REMDESIVIR
     Indication: COVID-19
     Dosage: 100 MG EVERY DAY IV
     Route: 042
     Dates: start: 20220211, end: 20220213

REACTIONS (2)
  - Headache [None]
  - Pseudostroke [None]

NARRATIVE: CASE EVENT DATE: 20220212
